FAERS Safety Report 13413057 (Version 2)
Quarter: 2017Q4

REPORT INFORMATION
  Report Type: Spontaneous
  Country: US (occurrence: US)
  Receive Date: 20170406
  Receipt Date: 20171114
  Transmission Date: 20180320
  Serious: Yes (Other)
  Sender: FDA-Public Use
  Company Number: US-JNJFOC-20170328777

PATIENT
  Age: 27 Year
  Sex: Male

DRUGS (2)
  1. RISPERDAL [Suspect]
     Active Substance: RISPERIDONE
     Indication: AUTISM SPECTRUM DISORDER
     Route: 048
     Dates: start: 199701, end: 2003
  2. RISPERDAL [Suspect]
     Active Substance: RISPERIDONE
     Indication: AUTISM SPECTRUM DISORDER
     Route: 048

REACTIONS (4)
  - Obesity [Unknown]
  - Gynaecomastia [Unknown]
  - Hyperglycaemia [Unknown]
  - Emotional disorder [Unknown]

NARRATIVE: CASE EVENT DATE: 201503
